FAERS Safety Report 6252184-0 (Version None)
Quarter: 2009Q2

REPORT INFORMATION
  Report Type: 
  Country: None (occurrence: None)
  Receive Date: 20090629
  Receipt Date: 20090615
  Transmission Date: 20091009
  Serious: Yes (Death)
  Sender: FDA-Public Use
  Company Number: A-CH2009-25862

PATIENT
  Age: 72 Year
  Sex: Male
  Weight: 67.3 kg

DRUGS (9)
  1. TRACLEER [Suspect]
     Indication: PULMONARY HYPERTENSION
     Dosage: 125 MG, BID, UNK 62.5 MG, UNK, BID
     Dates: start: 20040428, end: 20040601
  2. TRACLEER [Suspect]
     Indication: PULMONARY HYPERTENSION
     Dosage: 125 MG, BID, UNK 62.5 MG, UNK, BID
     Dates: start: 20040602, end: 20090608
  3. DIGOXIN [Concomitant]
  4. ACENOCOUMAROL (ACENOCOUMAROL) [Concomitant]
  5. FOLIUMZUUR (FOLIC ACID) [Concomitant]
  6. SPIRONOLACTONE [Concomitant]
  7. TIOTROPIUM (TIOTROPIUM) [Concomitant]
  8. SERETIDE (SALMETEROL, FLUTICASONE PROPIONATE) [Concomitant]
  9. FUROSEMIDE [Concomitant]

REACTIONS (1)
  - SUDDEN DEATH [None]
